FAERS Safety Report 24675525 (Version 1)
Quarter: 2024Q4

REPORT INFORMATION
  Report Type: Spontaneous
  Country: US (occurrence: US)
  Receive Date: 20241128
  Receipt Date: 20241128
  Transmission Date: 20250114
  Serious: Yes (Other)
  Sender: LABORATOIRES SERB
  Company Number: US-SERB S.A.S.-2166155

PATIENT
  Age: 64 Year
  Sex: Male

DRUGS (2)
  1. CYANOKIT [Suspect]
     Active Substance: HYDROXOCOBALAMIN
     Indication: Product used for unknown indication
  2. METFORMIN [Suspect]
     Active Substance: METFORMIN HYDROCHLORIDE

REACTIONS (6)
  - Shock [Not Recovered/Not Resolved]
  - Acidosis [Not Recovered/Not Resolved]
  - Haemofiltration [Not Recovered/Not Resolved]
  - Hypotension [Not Recovered/Not Resolved]
  - Blood lactic acid abnormal [Not Recovered/Not Resolved]
  - Illness [Not Recovered/Not Resolved]
